FAERS Safety Report 8321093-5 (Version None)
Quarter: 2012Q2

REPORT INFORMATION
  Report Type: 
  Country: None (occurrence: None)
  Receive Date: 20120430
  Receipt Date: 20120427
  Transmission Date: 20120825
  Serious: Yes (Death, Other)
  Sender: FDA-Public Use
  Company Number: PHHY2012GB021677

PATIENT
  Age: 82 Year
  Sex: Female
  Weight: 96 kg

DRUGS (1)
  1. VENLAFAXINE [Suspect]
     Indication: DEPRESSION

REACTIONS (7)
  - SEPSIS [None]
  - ASTHENIA [None]
  - CONDITION AGGRAVATED [None]
  - HYPOPHAGIA [None]
  - GENERAL PHYSICAL HEALTH DETERIORATION [None]
  - INFECTION [None]
  - SOCIAL AVOIDANT BEHAVIOUR [None]
